FAERS Safety Report 13899290 (Version 2)
Quarter: 2018Q3

REPORT INFORMATION
  Report Type: Report from Study
  Country: DE (occurrence: DE)
  Receive Date: 20170824
  Receipt Date: 20180725
  Transmission Date: 20181010
  Serious: Yes (Other)
  Sender: FDA-Public Use
  Company Number: DE-ROCHE-1981006

PATIENT
  Age: 23 Year
  Sex: Female

DRUGS (17)
  1. METHOTREXAT [Suspect]
     Active Substance: METHOTREXATE
     Indication: JUVENILE IDIOPATHIC ARTHRITIS
     Dosage: DAILY DOSE: 20 MG MILLGRAM(S) EVERY WEEKS
     Route: 048
     Dates: start: 20030815
  2. ORENCIA [Concomitant]
     Active Substance: ABATACEPT
     Dosage: VISIT T2
     Route: 065
     Dates: start: 201206
  3. ORENCIA [Concomitant]
     Active Substance: ABATACEPT
     Dosage: DAILY DOSE: 750 MG MILLGRAM(S) EVERY 4 WEEKS
     Route: 065
  4. METHOTREXAT [Suspect]
     Active Substance: METHOTREXATE
     Dosage: DAILY DOSE: 20 MG MILLGRAM(S) EVERY WEEKS
     Route: 048
  5. METHOTREXAT [Suspect]
     Active Substance: METHOTREXATE
     Dosage: DAILY DOSE: 20 MG MILLGRAM(S) EVERY WEEKS
     Route: 048
  6. ORENCIA [Concomitant]
     Active Substance: ABATACEPT
     Dosage: DAILY DOSE: 750 MG MILLGRAM(S) EVERY 4 WEEKS
     Route: 065
  7. METHOTREXAT [Suspect]
     Active Substance: METHOTREXATE
     Dosage: DAILY DOSE: 20 MG MILLGRAM(S) EVERY WEEKS
     Route: 048
  8. TOCILIZUMAB. [Suspect]
     Active Substance: TOCILIZUMAB
     Dosage: VISIT T6
     Route: 058
     Dates: start: 201310
  9. SULFASALAZINE DELAYED?RELEASE [Concomitant]
     Active Substance: SULFASALAZINE
     Route: 065
     Dates: start: 201107, end: 201111
  10. METHOTREXAT [Suspect]
     Active Substance: METHOTREXATE
     Dosage: DAILY DOSE: 20 MG MILLGRAM(S) EVERY WEEKS
     Route: 048
  11. METHOTREXAT [Suspect]
     Active Substance: METHOTREXATE
     Dosage: DAILY DOSE: 20 MG MILLGRAM(S) EVERY WEEKS
     Route: 048
     Dates: start: 20030815
  12. ORENCIA [Concomitant]
     Active Substance: ABATACEPT
     Dosage: DAILY DOSE: 750 MG MILLGRAM(S) EVERY 4 WEEKS
     Route: 065
     Dates: start: 201206, end: 201309
  13. TOCILIZUMAB. [Suspect]
     Active Substance: TOCILIZUMAB
     Indication: JUVENILE IDIOPATHIC ARTHRITIS
     Dosage: VISIT T9
     Route: 058
  14. TOCILIZUMAB. [Suspect]
     Active Substance: TOCILIZUMAB
     Dosage: VISIT T5
     Route: 058
     Dates: start: 201310
  15. ORENCIA [Concomitant]
     Active Substance: ABATACEPT
     Dosage: DAILY DOSE: 750 MG MILLGRAM(S) EVERY 4 WEEKS
     Route: 065
  16. SULFASALAZINE DELAYED?RELEASE [Concomitant]
     Active Substance: SULFASALAZINE
     Route: 065
     Dates: start: 20110707
  17. METHOTREXAT [Suspect]
     Active Substance: METHOTREXATE
     Dosage: DAILY DOSE: 20 MG MILLGRAM(S) EVERY WEEKS
     Route: 048

REACTIONS (1)
  - Carcinoma in situ [Recovered/Resolved]

NARRATIVE: CASE EVENT DATE: 20151215
